FAERS Safety Report 8209659-4 (Version None)
Quarter: 2012Q1

REPORT INFORMATION
  Report Type: 
  Country: None (occurrence: None)
  Receive Date: 20120314
  Receipt Date: 20120308
  Transmission Date: 20120608
  Serious: Yes (Other)
  Sender: FDA-Public Use
  Company Number: US-PFIZER INC-2012062982

PATIENT
  Sex: Female
  Weight: 61.224 kg

DRUGS (5)
  1. WARFARIN SODIUM [Concomitant]
     Indication: ANTICOAGULANT THERAPY
     Dosage: 5 MG, DAILY
  2. XANAX [Suspect]
     Dosage: UNK
     Route: 048
  3. HYDROCODONE [Concomitant]
     Indication: PAIN
     Dosage: UNK, 3X/WEEK
  4. XANAX [Suspect]
     Indication: NERVOUSNESS
     Dosage: 0.5 MG, DAILY
     Route: 048
  5. XANAX [Suspect]
     Indication: ANXIETY
     Dosage: 1 MG, DAILY
     Route: 048

REACTIONS (5)
  - NAUSEA [None]
  - FATIGUE [None]
  - VOMITING [None]
  - NEOPLASM MALIGNANT [None]
  - DRUG INEFFECTIVE [None]
